FAERS Safety Report 11559618 (Version 1)
Quarter: 2015Q3

REPORT INFORMATION
  Report Type: Spontaneous
  Country: US (occurrence: None)
  Receive Date: 20150925
  Receipt Date: 20150925
  Transmission Date: 20151125
  Serious: Yes (Disabling)
  Sender: FDA-Public Use
  Company Number: None

PATIENT
  Age: 50 Year
  Sex: Female
  Weight: 58.97 kg

DRUGS (17)
  1. K [Concomitant]
  2. PROLIA [Suspect]
     Active Substance: DENOSUMAB
     Indication: OSTEOPOROSIS
     Dates: start: 20150604
  3. MAGNESIUM [Concomitant]
     Active Substance: MAGNESIUM
  4. VITAMIN B12 [Concomitant]
     Active Substance: CYANOCOBALAMIN
  5. MILK THISTLE [Concomitant]
     Active Substance: MILK THISTLE
  6. K2 [Concomitant]
     Active Substance: JWH-018
  7. L-ARGININE [Concomitant]
     Active Substance: ARGININE
  8. CALCIUM CITRATE [Concomitant]
     Active Substance: CALCIUM CITRATE
  9. VITAMIN D3 [Concomitant]
     Active Substance: CHOLECALCIFEROL
  10. B 100 COMPLEX [Concomitant]
  11. CLA (OMEGA 6) [Concomitant]
  12. TURMERIC [Concomitant]
     Active Substance: TURMERIC
  13. DAILY VITAMIN [Concomitant]
     Active Substance: VITAMINS
  14. FISH OIL W/OMEGA 3 [Concomitant]
  15. SILICA [Concomitant]
     Active Substance: SILICON DIOXIDE
  16. GABAPENTIN. [Concomitant]
     Active Substance: GABAPENTIN
  17. L-LYSINE [Concomitant]
     Active Substance: LYSINE

REACTIONS (11)
  - Neuralgia [None]
  - Nerve injury [None]
  - Dyspepsia [None]
  - Mass [None]
  - Rash [None]
  - Foot fracture [None]
  - Jaw disorder [None]
  - Bone pain [None]
  - Stress fracture [None]
  - Arthralgia [None]
  - Arthropathy [None]

NARRATIVE: CASE EVENT DATE: 201506
